FAERS Safety Report 17725185 (Version 1)
Quarter: 2020Q2

REPORT INFORMATION
  Report Type: Spontaneous
  Country: GB (occurrence: GB)
  Receive Date: 20200429
  Receipt Date: 20200429
  Transmission Date: 20200714
  Serious: Yes (Hospitalization)
  Sender: FDA-Public Use
  Company Number: GB-MYLANLABS-2020M1041925

PATIENT
  Age: 72 Year
  Sex: Male

DRUGS (13)
  1. CALCIUM W/COLECALCIFEROL [Concomitant]
     Active Substance: CALCIUM\CHOLECALCIFEROL
     Dosage: COLECALCIFEROL 200UNIT / CALCIUM CARBONATE 750MG TABLETS
     Route: 048
  2. MONTELUKAST [Concomitant]
     Active Substance: MONTELUKAST SODIUM
     Dosage: 10 MILLIGRAM, QD (NIGHT)
     Route: 048
  3. SALBUTAMOL [Concomitant]
     Active Substance: ALBUTEROL
     Dosage: 1 OR 2 PUFFS, AS NECESSARY
     Route: 050
  4. TRELEGY ELLIPTA [Concomitant]
     Active Substance: FLUTICASONE FUROATE\UMECLIDINIUM BROMIDE\VILANTEROL TRIFENATATE
     Dosage: 1 DOSAGE FORM, QD (MORNING)
     Route: 050
  5. TAFLUPROST [Concomitant]
     Active Substance: TAFLUPROST
     Dosage: AT NIGHT INTO LEFT EYE. 15MICROGRAMS/ML
     Route: 061
  6. ATORVASTATIN [Concomitant]
     Active Substance: ATORVASTATIN
     Dosage: 10 MILLIGRAM, QD (AT NIGHT)
     Route: 048
  7. CYCLOPENTOLATE. [Concomitant]
     Active Substance: CYCLOPENTOLATE
     Dosage: 2 GTT DROPS, QD (LEFT EYE)
     Route: 061
  8. METFORMIN [Concomitant]
     Active Substance: METFORMIN HYDROCHLORIDE
     Dosage: 500 MILLIGRAM, QD (MORNING)
     Route: 048
  9. EPHEDRINE. [Concomitant]
     Active Substance: EPHEDRINE
     Dosage: USE QDS IN BOTH NOSTRILS
     Route: 045
  10. SODIUM CHLORIDE. [Concomitant]
     Active Substance: SODIUM CHLORIDE
     Dosage: 4 GTT DROPS, QD (LEFT EYE)
     Route: 061
  11. AMLODIPINE [Suspect]
     Active Substance: AMLODIPINE BESYLATE
     Indication: PRODUCT USED FOR UNKNOWN INDICATION
     Dosage: 10 MILLIGRAM, QD (MONRING)
     Route: 048
     Dates: end: 20200206
  12. CHLORAMPHENICOL [Concomitant]
     Active Substance: CHLORAMPHENICOL
     Dosage: 1 DOSAGE FORM, QD (LEFT EYE AT NIGHT)
     Route: 061
  13. ALENDRONIC ACID [Concomitant]
     Active Substance: ALENDRONIC ACID
     Dosage: 70 MILLIGRAM, QW (ON A MONDAY)
     Route: 048

REACTIONS (1)
  - Orthostatic hypotension [Recovering/Resolving]

NARRATIVE: CASE EVENT DATE: 20200131
